FAERS Safety Report 17963428 (Version 6)
Quarter: 2021Q2

REPORT INFORMATION
  Report Type: Report from Study
  Country: US (occurrence: US)
  Receive Date: 20200630
  Receipt Date: 20210414
  Transmission Date: 20210717
  Serious: No
  Sender: FDA-Public Use
  Company Number: NVSC2020US178283

PATIENT
  Age: 38 Year
  Sex: Female

DRUGS (3)
  1. COSENTYX [Suspect]
     Active Substance: SECUKINUMAB
     Indication: AXIAL SPONDYLOARTHRITIS
     Dosage: 300 MG, QMO
     Route: 058
  2. COSENTYX [Suspect]
     Active Substance: SECUKINUMAB
     Indication: PSORIATIC ARTHROPATHY
  3. COSENTYX [Suspect]
     Active Substance: SECUKINUMAB
     Indication: ANKYLOSING SPONDYLITIS
     Dosage: 150 MG, QMO
     Route: 060
     Dates: start: 20190222

REACTIONS (13)
  - Intervertebral disc degeneration [Not Recovered/Not Resolved]
  - Pain [Recovered/Resolved]
  - Symptom recurrence [Unknown]
  - Incorrect route of product administration [Unknown]
  - Gait disturbance [Not Recovered/Not Resolved]
  - Back disorder [Not Recovered/Not Resolved]
  - Intentional overdose [Not Recovered/Not Resolved]
  - Condition aggravated [Recovering/Resolving]
  - Pain in extremity [Not Recovered/Not Resolved]
  - Hypersensitivity [Unknown]
  - Musculoskeletal stiffness [Not Recovered/Not Resolved]
  - Product dose omission issue [Not Recovered/Not Resolved]
  - Back pain [Unknown]

NARRATIVE: CASE EVENT DATE: 2019
